FAERS Safety Report 5828356-3 (Version None)
Quarter: 2008Q3

REPORT INFORMATION
  Report Type: 
  Country: None (occurrence: None)
  Receive Date: 20080729
  Receipt Date: 20080729
  Transmission Date: 20090109
  Serious: Yes (Hospitalization, Other)
  Sender: FDA-Public Use
  Company Number: None

PATIENT
  Age: 30 Year
  Sex: Female
  Weight: 106.5953 kg

DRUGS (3)
  1. CELEXA [Suspect]
     Indication: POSTPARTUM DEPRESSION
     Dosage: 40 MG  PO
     Route: 048
     Dates: start: 20080207, end: 20080219
  2. KLONOPIN [Suspect]
     Indication: POSTPARTUM DEPRESSION
     Dosage: 0.5 MG  PO
     Route: 048
     Dates: start: 20080207, end: 20080215
  3. LEXAPRO [Concomitant]

REACTIONS (3)
  - FEELING JITTERY [None]
  - HEART RATE INCREASED [None]
  - INSOMNIA [None]
